FAERS Safety Report 20967601 (Version 2)
Quarter: 2022Q3

REPORT INFORMATION
  Report Type: Spontaneous
  Country: DE (occurrence: DE)
  Receive Date: 20220616
  Receipt Date: 20220726
  Transmission Date: 20221027
  Serious: Yes (Other)
  Sender: FDA-Public Use
  Company Number: DE-PFIZER INC-202200827674

PATIENT
  Age: 73 Year
  Sex: Female

DRUGS (3)
  1. MITOXANTRONE HYDROCHLORIDE [Suspect]
     Active Substance: MITOXANTRONE HYDROCHLORIDE
     Indication: Small cell lung cancer
     Dosage: SINGLE DOSE OF 275 MG MITOXANTRONE, EQUIVALENT TO 183 MG M -2
     Route: 040
  2. CYCLOPHOSPHAMIDE [Concomitant]
     Active Substance: CYCLOPHOSPHAMIDE
     Indication: Small cell lung cancer
     Dosage: 200 MG/M2
  3. VINCRISTINE [Concomitant]
     Active Substance: VINCRISTINE
     Indication: Small cell lung cancer
     Dosage: 1 MG/M2

REACTIONS (7)
  - Accidental overdose [Unknown]
  - Myelosuppression [Unknown]
  - Chills [Recovered/Resolved]
  - Nausea [Recovered/Resolved]
  - Vomiting [Recovered/Resolved]
  - Decreased appetite [Unknown]
  - Pyrexia [Unknown]
